FAERS Safety Report 13791352 (Version 1)
Quarter: 2017Q3

REPORT INFORMATION
  Report Type: Spontaneous
  Country: CA (occurrence: CA)
  Receive Date: 20170725
  Receipt Date: 20170725
  Transmission Date: 20171127
  Serious: Yes (Other)
  Sender: FDA-Public Use
  Company Number: CA-SA-2017SA133671

PATIENT
  Sex: Female

DRUGS (1)
  1. ALLEGRA [Suspect]
     Active Substance: FEXOFENADINE HYDROCHLORIDE
     Indication: HYPERSENSITIVITY
     Route: 048
     Dates: end: 20170709

REACTIONS (13)
  - Gout [Recovering/Resolving]
  - Ill-defined disorder [Recovering/Resolving]
  - Initial insomnia [Recovering/Resolving]
  - Localised infection [Recovering/Resolving]
  - Nausea [Recovering/Resolving]
  - Diarrhoea [Recovering/Resolving]
  - Hunger [Recovering/Resolving]
  - Weight decreased [Recovering/Resolving]
  - Thirst [Recovering/Resolving]
  - Pollakiuria [Recovering/Resolving]
  - Arthralgia [Recovering/Resolving]
  - Somnolence [Recovering/Resolving]
  - Feeling cold [Recovering/Resolving]
